FAERS Safety Report 5182919-X (Version None)
Quarter: 2006Q4

REPORT INFORMATION
  Report Type: 
  Country: None (occurrence: None)
  Receive Date: 20061212
  Receipt Date: 20061129
  Transmission Date: 20070319
  Serious: Yes (Hospitalization)
  Sender: FDA-Public Use
  Company Number: 233180

PATIENT
  Age: 71 Year
  Sex: Female
  Weight: 74.2 kg

DRUGS (2)
  1. AVASTIN [Suspect]
     Indication: NON-SMALL CELL LUNG CANCER
     Dosage: 800 MG, QOW, INTRAVENOUS
     Route: 042
     Dates: start: 20061026, end: 20061109
  2. TOPOTECAN (TOPOTECAN HYDROCHLORIDE) [Suspect]
     Indication: NON-SMALL CELL LUNG CANCER
     Dosage: 9.4 MG, 1/WEEK, INTRAVENOUS
     Route: 042
     Dates: start: 20061026, end: 20061116

REACTIONS (5)
  - ANAEMIA [None]
  - BACK PAIN [None]
  - HYPONATRAEMIA [None]
  - THROMBOCYTOPENIA [None]
  - URINARY TRACT INFECTION [None]
